FAERS Safety Report 11840445 (Version 1)
Quarter: 2015Q4

REPORT INFORMATION
  Report Type: Spontaneous
  Country: US (occurrence: None)
  Receive Date: 20151215
  Receipt Date: 20151215
  Transmission Date: 20160305
  Serious: Yes (Life-Threatening, Hospitalization)
  Sender: FDA-Public Use
  Company Number: None

PATIENT
  Age: 69 Year
  Sex: Male
  Weight: 76.66 kg

DRUGS (13)
  1. ARIPIPRAZOLE. [Concomitant]
     Active Substance: ARIPIPRAZOLE
  2. NOVOLOG [Concomitant]
     Active Substance: INSULIN ASPART
  3. INSULIN ASPART - NOVOLOG [Concomitant]
  4. METFORMIN [Concomitant]
     Active Substance: METFORMIN HYDROCHLORIDE
  5. OMEPRAZOLE. [Concomitant]
     Active Substance: OMEPRAZOLE
  6. AMLODIPINE [Concomitant]
     Active Substance: AMLODIPINE BESYLATE
  7. LISINOPRIL. [Concomitant]
     Active Substance: LISINOPRIL
  8. LORATADINE. [Concomitant]
     Active Substance: LORATADINE
  9. ETODOLAC. [Concomitant]
     Active Substance: ETODOLAC
  10. ASPRIN [Concomitant]
     Active Substance: ASPIRIN
  11. INSULIN GLARGINE [Concomitant]
     Active Substance: INSULIN GLARGINE
  12. SIMVASTATION [Concomitant]
  13. CHLORTHALIDONE. [Suspect]
     Active Substance: CHLORTHALIDONE
     Indication: HYPERTENSION
     Dosage: 1 PILL
     Route: 048
     Dates: start: 20151207, end: 20151208

REACTIONS (2)
  - Hypotension [None]
  - Weight decreased [None]

NARRATIVE: CASE EVENT DATE: 20151207
